FAERS Safety Report 13777807 (Version 1)
Quarter: 2017Q3

REPORT INFORMATION
  Report Type: Spontaneous
  Country: ES (occurrence: ES)
  Receive Date: 20170721
  Receipt Date: 20170721
  Transmission Date: 20171127
  Serious: Yes (Other)
  Sender: FDA-Public Use
  Company Number: ES-ELI_LILLY_AND_COMPANY-ES201707006264

PATIENT
  Age: 52 Year
  Sex: Male
  Weight: 74 kg

DRUGS (1)
  1. ERBITUX [Suspect]
     Active Substance: CETUXIMAB
     Indication: LARYNGEAL CANCER
     Dosage: 400 MG/M2 (780 MG), UNKNOWN
     Route: 042
     Dates: start: 20170613

REACTIONS (4)
  - Hypotension [Recovered/Resolved]
  - Pruritus [Recovered/Resolved]
  - Dyspnoea at rest [Recovered/Resolved]
  - Presyncope [Recovered/Resolved]

NARRATIVE: CASE EVENT DATE: 20170613
